FAERS Safety Report 10428135 (Version 1)
Quarter: 2014Q3

REPORT INFORMATION
  Report Type: Spontaneous
  Country: CA (occurrence: CA)
  Receive Date: 20140903
  Receipt Date: 20140903
  Transmission Date: 20150326
  Serious: Yes (Other)
  Sender: FDA-Public Use
  Company Number: CHPA2014CA011379

PATIENT
  Age: 24 Year
  Sex: Male

DRUGS (1)
  1. THRIVE [Suspect]
     Active Substance: NICOTINE
     Indication: SMOKING CESSATION THERAPY
     Dosage: 1 DF, ONCE/SINGLE
     Route: 048
     Dates: start: 20140827, end: 20140827

REACTIONS (1)
  - Pharyngeal oedema [Not Recovered/Not Resolved]

NARRATIVE: CASE EVENT DATE: 20140827
